FAERS Safety Report 8915389 (Version 1)
Quarter: 2012Q4

REPORT INFORMATION
  Report Type: 
  Country: US (occurrence: US)
  Receive Date: 20121119
  Receipt Date: 20121119
  Transmission Date: 20130627
  Serious: Yes (Other)
  Sender: FDA-Public Use
  Company Number: US-PFIZER INC-2012285999

PATIENT
  Age: 74 Year
  Sex: Male
  Weight: 95.24 kg

DRUGS (4)
  1. LYRICA [Suspect]
     Indication: UNILATERAL LEG PAIN
     Dosage: 75 mg, 2x/day
     Route: 048
  2. LYRICA [Suspect]
     Dosage: 75 mg, 3x/day
     Route: 048
  3. HYDROCHLOROTHIAZIDE [Concomitant]
     Indication: BLOOD PRESSURE HIGH
     Dosage: UNK
  4. SIMVASTATIN [Concomitant]
     Indication: HIGH CHOLESTEROL
     Dosage: UNK

REACTIONS (4)
  - Lung neoplasm malignant [Unknown]
  - Ear neoplasm malignant [Unknown]
  - Arthropathy [Unknown]
  - Rotator cuff syndrome [Unknown]
